FAERS Safety Report 7129968-X (Version None)
Quarter: 2010Q4

REPORT INFORMATION
  Report Type: 
  Country: None (occurrence: None)
  Receive Date: 20101130
  Receipt Date: 20101126
  Transmission Date: 20110411
  Serious: Yes (Hospitalization)
  Sender: FDA-Public Use
  Company Number: US-BRISTOL-MYERS SQUIBB COMPANY-15401623

PATIENT
  Age: 79 Year
  Sex: Female

DRUGS (11)
  1. SOTALOL HCL [Interacting]
  2. WARFARIN SODIUM [Suspect]
  3. OSELTAMIVIR PHOSPHATE [Interacting]
     Dosage: DAYS 5-10.
  4. ASPIRIN [Suspect]
  5. LISINOPRIL [Concomitant]
  6. FUROSEMIDE [Concomitant]
  7. POTASSIUM CHLORIDE [Concomitant]
  8. CALCIUM [Concomitant]
  9. LECITHIN [Concomitant]
  10. GLUCOSAMINE [Concomitant]
  11. MULTI-VITAMIN [Concomitant]

REACTIONS (6)
  - COLITIS ISCHAEMIC [None]
  - DRUG INTERACTION [None]
  - GASTROINTESTINAL HAEMORRHAGE [None]
  - H1N1 INFLUENZA [None]
  - HYPOKALAEMIA [None]
  - TORSADE DE POINTES [None]
